FAERS Safety Report 8517084-1 (Version None)
Quarter: 2012Q3

REPORT INFORMATION
  Report Type: 
  Country: None (occurrence: None)
  Receive Date: 20120718
  Receipt Date: 20120706
  Transmission Date: 20120928
  Serious: Yes (Hospitalization, Other)
  Sender: FDA-Public Use
  Company Number: JP-PFIZER INC-2011060148

PATIENT
  Age: 69 Year
  Sex: Male
  Weight: 70 kg

DRUGS (14)
  1. IRINOTECAN HYDROCHLORIDE [Suspect]
     Dosage: 176 MG, 1X/DAY
     Route: 041
     Dates: start: 20110608, end: 20110608
  2. IRINOTECAN HYDROCHLORIDE [Suspect]
     Dosage: 176 MG, 1X/DAY
     Route: 041
     Dates: start: 20110406, end: 20110406
  3. IRINOTECAN HYDROCHLORIDE [Suspect]
     Dosage: 176 MG, 1X/DAY
     Route: 041
     Dates: start: 20110504, end: 20110504
  4. IRINOTECAN HYDROCHLORIDE [Suspect]
     Dosage: 176 MG, 1X/DAY
     Route: 041
     Dates: start: 20110119, end: 20110119
  5. IRINOTECAN HYDROCHLORIDE [Suspect]
     Dosage: 176 MG, 1X/DAY
     Route: 041
     Dates: start: 20110629, end: 20110629
  6. FLUOROURACIL [Concomitant]
     Indication: COLORECTAL CANCER
     Dosage: 704 MG (400 MG/M2), UNK
     Route: 040
     Dates: start: 20110105, end: 20110629
  7. IRINOTECAN HYDROCHLORIDE [Suspect]
     Dosage: 176 MG, 1X/DAY
     Route: 041
     Dates: start: 20110420, end: 20110420
  8. IRINOTECAN HYDROCHLORIDE [Suspect]
     Dosage: 176 MG, 1X/DAY
     Route: 041
     Dates: start: 20110316, end: 20110316
  9. IRINOTECAN HYDROCHLORIDE [Suspect]
     Dosage: 176 MG, 1X/DAY
     Route: 041
     Dates: start: 20110525, end: 20110525
  10. IRINOTECAN HYDROCHLORIDE [Suspect]
     Indication: COLORECTAL CANCER
     Dosage: 176 MG, 1X/DAY
     Route: 041
     Dates: start: 20110105, end: 20110105
  11. IRINOTECAN HYDROCHLORIDE [Suspect]
     Dosage: 176 MG, 1X/DAY
     Route: 041
     Dates: start: 20110302, end: 20110302
  12. LEVOFOLINATE CALCIUM [Concomitant]
     Indication: COLORECTAL CANCER
     Dosage: 352 MG (200 MG/M2), UNK
     Route: 041
     Dates: start: 20110105, end: 20110629
  13. FLUOROURACIL [Concomitant]
     Dosage: 4224 MG (2400 MG/M2), D1-2
     Route: 041
     Dates: start: 20110105, end: 20110629
  14. ERBITUX [Concomitant]
     Indication: COLORECTAL CANCER
     Dosage: 440 MG (250 MG/M2), UNK
     Route: 041
     Dates: start: 20110105, end: 20110720

REACTIONS (2)
  - PNEUMONIA [None]
  - BLOOD CREATININE INCREASED [None]
